FAERS Safety Report 18122397 (Version 1)
Quarter: 2020Q3

REPORT INFORMATION
  Report Type: Spontaneous
  Country: US (occurrence: US)
  Receive Date: 20200807
  Receipt Date: 20200807
  Transmission Date: 20201103
  Serious: Yes (Hospitalization)
  Sender: FDA-Public Use
  Company Number: US-CADILA HEALTHCARE LIMITED-US-ZYDUS-053952

PATIENT

DRUGS (17)
  1. VALPROIC ACID. [Suspect]
     Active Substance: VALPROIC ACID
     Dosage: 20 MILLIGRAM/KILOGRAM
     Route: 048
  2. ONFI [Interacting]
     Active Substance: CLOBAZAM
     Dosage: 10 MILLIGRAM, BID (0.7 MG/KG/DAY)
     Route: 065
  3. LORATADINE. [Interacting]
     Active Substance: LORATADINE
     Indication: PRODUCT USED FOR UNKNOWN INDICATION
     Dosage: 10 MILLIGRAM, QD
     Route: 048
  4. MELATONIN [Interacting]
     Active Substance: MELATONIN
     Indication: PRODUCT USED FOR UNKNOWN INDICATION
     Dosage: 3 MILLIGRAM, QD (AT BED TIME)
     Route: 065
  5. BACLOFEN. [Concomitant]
     Active Substance: BACLOFEN
     Indication: PRODUCT USED FOR UNKNOWN INDICATION
     Dosage: 1051 MICROGRAM, QD (BY PUMP)
  6. LORAZEPAM. [Concomitant]
     Active Substance: LORAZEPAM
     Indication: EPILEPSY
     Dosage: 2 MILLIGRAM (0.07 MG/KG) (EVERY 4?6 HOURS AS NEEDED)
     Route: 048
  7. ONFI [Interacting]
     Active Substance: CLOBAZAM
     Dosage: 5 MILLIGRAM, BID (0.3 MG/KG/DAY)
     Route: 065
  8. DIPHENHYDRAMINE. [Interacting]
     Active Substance: DIPHENHYDRAMINE
     Indication: PRODUCT USED FOR UNKNOWN INDICATION
     Dosage: UNK
     Route: 065
  9. LORAZEPAM. [Concomitant]
     Active Substance: LORAZEPAM
     Indication: GENERALISED TONIC-CLONIC SEIZURE
     Dosage: UNK,(2 MG (0.07 MG/KG/DOSE,EVERY 4 HOURS AS NEEDED)
  10. CLONAZEPAM. [Concomitant]
     Active Substance: CLONAZEPAM
     Indication: EPILEPSY
     Dosage: 0.02 MILLIGRAM/KILOGRAM, TID
  11. CLONIDINE. [Suspect]
     Active Substance: CLONIDINE
     Indication: PRODUCT USED FOR UNKNOWN INDICATION
     Dosage: 0.2 MILLIGRAM, QD (AT BED TIME)
     Route: 065
  12. ONFI [Interacting]
     Active Substance: CLOBAZAM
     Dosage: 7.5 MILLIGRAM, BID (0.5 MG/KG/DAY)
     Route: 065
  13. LORAZEPAM. [Concomitant]
     Active Substance: LORAZEPAM
     Indication: ANXIETY
     Dosage: 1 MILLIGRAM, QD
     Route: 048
  14. GLYCOPYRROLATE [GLYCOPYRRONIUM] [Concomitant]
     Active Substance: GLYCOPYRRONIUM
     Indication: PRODUCT USED FOR UNKNOWN INDICATION
     Dosage: UNK, PRN(1 MG IN THE MORNING, 1.5 MG AT NOON, AND 1 MG AT BEDTIME AS NEEDED)
     Route: 048
  15. ONFI [Interacting]
     Active Substance: CLOBAZAM
     Indication: EPILEPSY
     Dosage: 5 MILLIGRAM, BID (0.3 MG/KG/DAY)
     Route: 048
  16. VALPROIC ACID. [Suspect]
     Active Substance: VALPROIC ACID
     Indication: EPILEPSY
     Dosage: 200 MILLIGRAM, TID
     Route: 048
  17. LEVETIRACETAM. [Concomitant]
     Active Substance: LEVETIRACETAM
     Indication: EPILEPSY
     Dosage: 1200 MILLIGRAM, BID (80 MG/KG/DAY)

REACTIONS (2)
  - Drug interaction [Unknown]
  - Hypersomnia [Recovered/Resolved]
